FAERS Safety Report 15686676 (Version 1)
Quarter: 2018Q4

REPORT INFORMATION
  Report Type: Spontaneous
  Country: DE (occurrence: DE)
  Receive Date: 20181204
  Receipt Date: 20181204
  Transmission Date: 20190205
  Serious: Yes (Other)
  Sender: FDA-Public Use
  Company Number: DE-BAYER-2018-221268

PATIENT
  Age: 36 Year
  Sex: Female

DRUGS (1)
  1. MIRENA [Suspect]
     Active Substance: LEVONORGESTREL
     Indication: CONTRACEPTION
     Route: 015
     Dates: start: 201703, end: 201810

REACTIONS (12)
  - Abdominal distension [Not Recovered/Not Resolved]
  - Extraocular muscle paresis [Recovering/Resolving]
  - Panic attack [Recovering/Resolving]
  - Back pain [Recovering/Resolving]
  - Dizziness [Recovered/Resolved]
  - Libido decreased [None]
  - Hirsutism [Recovering/Resolving]
  - Decreased appetite [Recovering/Resolving]
  - Alopecia [Recovering/Resolving]
  - Hypoaesthesia [Recovering/Resolving]
  - Amnesia [Unknown]
  - Presyncope [Recovered/Resolved]

NARRATIVE: CASE EVENT DATE: 201703
